FAERS Safety Report 4596008-6 (Version None)
Quarter: 2005Q1

REPORT INFORMATION
  Report Type: 
  Country: None (occurrence: None)
  Receive Date: 20050302
  Receipt Date: 20050216
  Transmission Date: 20050727
  Serious: Yes (Life-Threatening, Hospitalization)
  Sender: FDA-Public Use
  Company Number: US-JNJFOC-20041105423

PATIENT
  Sex: Male

DRUGS (2)
  1. DURAGESIC-100 [Suspect]
     Route: 062
     Dates: start: 20040201
  2. ULTRAM [Concomitant]
     Indication: THERAPEUTIC RESPONSE DECREASED
     Dosage: TAKES RARELY, AS NEEDED
     Route: 049
     Dates: start: 20040908

REACTIONS (4)
  - ANGIOPLASTY [None]
  - APPLICATION SITE BRUISING [None]
  - DERMATITIS CONTACT [None]
  - MYOCARDIAL INFARCTION [None]
